FAERS Safety Report 7490836-5 (Version None)
Quarter: 2011Q2

REPORT INFORMATION
  Report Type: 
  Country: None (occurrence: None)
  Receive Date: 20110517
  Receipt Date: 20110517
  Transmission Date: 20111010
  Serious: Yes (Hospitalization)
  Sender: FDA-Public Use
  Company Number: None

PATIENT
  Sex: Female
  Weight: 94.3482 kg

DRUGS (1)
  1. COUMADIN [Suspect]
     Indication: THROMBOSIS
     Dosage: 6 TABLETS EVERY DAY

REACTIONS (1)
  - THROMBOSIS [None]
